FAERS Safety Report 9774804 (Version 2)
Quarter: 2014Q1

REPORT INFORMATION
  Report Type: Spontaneous
  Country: BR (occurrence: BR)
  Receive Date: 20131220
  Receipt Date: 20140114
  Transmission Date: 20141002
  Serious: Yes (Hospitalization)
  Sender: FDA-Public Use
  Company Number: BR-ASTRAZENECA-2013SE91849

PATIENT
  Age: 702 Month
  Sex: Male
  Weight: 81 kg

DRUGS (2)
  1. ATACAND HCT [Suspect]
     Indication: HYPERTENSION
     Dosage: 16/12.5 MG, DAILY
     Route: 048
     Dates: start: 2008
  2. SECOTEX [Concomitant]
     Indication: PROSTATIC DISORDER
     Route: 048

REACTIONS (1)
  - Coronary artery occlusion [Recovered/Resolved]
